FAERS Safety Report 13523006 (Version 2)
Quarter: 2017Q3

REPORT INFORMATION
  Report Type: Spontaneous
  Country: US (occurrence: US)
  Receive Date: 20170508
  Receipt Date: 20170810
  Transmission Date: 20171127
  Serious: No
  Sender: FDA-Public Use
  Company Number: US-VIFOR (INTERNATIONAL) INC.-VIT-2017-00796

PATIENT
  Age: 70 Year
  Sex: Male

DRUGS (9)
  1. ULORIC [Concomitant]
     Active Substance: FEBUXOSTAT
  2. FLOMAX [Concomitant]
     Active Substance: TAMSULOSIN HYDROCHLORIDE
  3. SODIUM [Concomitant]
     Active Substance: SODIUM
  4. FINASTERIDE. [Concomitant]
     Active Substance: FINASTERIDE
  5. VELTASSA [Suspect]
     Active Substance: PATIROMER
     Indication: HYPERKALAEMIA
     Route: 048
     Dates: start: 201603
  6. NEPHRO-VITE [Concomitant]
  7. AMLODIPINE [Concomitant]
     Active Substance: AMLODIPINE BESYLATE
  8. CALCITRIOL. [Concomitant]
     Active Substance: CALCITRIOL
  9. COREG [Concomitant]
     Active Substance: CARVEDILOL

REACTIONS (3)
  - Diarrhoea [Not Recovered/Not Resolved]
  - Abdominal discomfort [Unknown]
  - Drug dose omission [Unknown]

NARRATIVE: CASE EVENT DATE: 201612
